FAERS Safety Report 9715309 (Version 1)
Quarter: 2013Q4

REPORT INFORMATION
  Report Type: Spontaneous
  Country: US (occurrence: US)
  Receive Date: 20131127
  Receipt Date: 20131127
  Transmission Date: 20140711
  Serious: Yes (Death, Hospitalization)
  Sender: FDA-Public Use
  Company Number: US-INDICUS PHARMA-000150

PATIENT
  Age: 45 Year
  Sex: Female

DRUGS (8)
  1. FENOFIBRIC ACID [Suspect]
     Dosage: UNKNOWN AMOUNTS
     Route: 048
  2. SITAGLIPTIN [Suspect]
     Dosage: UNKNOWN AMOUNT
     Route: 048
  3. ZOLPIDEM [Suspect]
     Dosage: UNKNOWN AMOUNT
     Route: 048
  4. IRBESARTAN [Suspect]
     Dosage: UNKNOWN AMOUNTS
     Route: 048
  5. METOPROLOL [Suspect]
     Dosage: 10 METOPROLOL 25 MG
     Route: 048
  6. AMLODIPINE [Suspect]
     Dosage: UP TO 30 AMLODIPINE?10 MG TABLETS
     Route: 048
  7. HYDROCHLOROTHIAZIDE [Suspect]
     Dosage: UNKNOWN AMOUNTS
     Route: 048
  8. METFORMIN HYDROCHLORIDE [Suspect]
     Dosage: 9 METFORMIN 1000 MG TABLETS
     Route: 048

REACTIONS (7)
  - Faecal incontinence [Unknown]
  - Dysarthria [Unknown]
  - Completed suicide [Fatal]
  - Overdose [Fatal]
  - Lactic acidosis [Recovering/Resolving]
  - Hypotension [Unknown]
  - Unresponsive to stimuli [Unknown]
